FAERS Safety Report 5646407-6 (Version None)
Quarter: 2008Q1

REPORT INFORMATION
  Report Type: 
  Country: None (occurrence: None)
  Receive Date: 20080227
  Receipt Date: 20080219
  Transmission Date: 20080703
  Serious: Yes (Disabling)
  Sender: FDA-Public Use
  Company Number: GXKR2008GB01780

PATIENT
  Age: 47 Year
  Sex: Male

DRUGS (4)
  1. NABUMETONE [Suspect]
     Indication: BACK PAIN
     Dosage: 500 MG, BID, ORAL
     Route: 048
     Dates: start: 20070401, end: 20080101
  2. CITALOPRAM HYDROBROMIDE [Concomitant]
  3. DIAZEPAM [Concomitant]
  4. RISPERIDONE [Concomitant]

REACTIONS (2)
  - DEPRESSION [None]
  - HALLUCINATION [None]
